FAERS Safety Report 18230385 (Version 1)
Quarter: 2020Q3

REPORT INFORMATION
  Report Type: Spontaneous
  Country: FR (occurrence: FR)
  Receive Date: 20200903
  Receipt Date: 20200903
  Transmission Date: 20201103
  Serious: Yes (Other)
  Sender: FDA-Public Use
  Company Number: FR-009507513-2008FRA012664

PATIENT
  Age: 67 Year
  Sex: Male
  Weight: 75 kg

DRUGS (6)
  1. PANTOPRAZOLE [Concomitant]
     Active Substance: PANTOPRAZOLE
     Dosage: UNK
  2. PERMIXON [Suspect]
     Active Substance: HERBALS\SAW PALMETTO
     Indication: BENIGN PROSTATIC HYPERPLASIA
     Dosage: 160 MILLIGRAM, QD
     Route: 048
     Dates: start: 2017, end: 20200625
  3. IRBESARTAN. [Concomitant]
     Active Substance: IRBESARTAN
     Dosage: UNK
  4. BRILIQUE [Concomitant]
     Active Substance: TICAGRELOR
     Dosage: UNK
  5. RESITUNE [Concomitant]
     Active Substance: ASPIRIN
     Dosage: UNK
  6. LIPTRUZET [Suspect]
     Active Substance: ATORVASTATIN CALCIUM\EZETIMIBE
     Indication: PROPHYLAXIS
     Dosage: 1 DOSAGE FORM, QD (FILM COATED TABLET)
     Route: 048
     Dates: start: 201909, end: 20200625

REACTIONS (4)
  - Decreased appetite [Recovering/Resolving]
  - Hepatocellular injury [Recovering/Resolving]
  - Asthenia [Recovering/Resolving]
  - Cholestasis [Recovering/Resolving]

NARRATIVE: CASE EVENT DATE: 202006
